FAERS Safety Report 20675377 (Version 1)
Quarter: 2022Q2

REPORT INFORMATION
  Report Type: Spontaneous
  Country: US (occurrence: US)
  Receive Date: 20220405
  Receipt Date: 20220405
  Transmission Date: 20220721
  Serious: Yes (Hospitalization, Other)
  Sender: FDA-Public Use
  Company Number: US-PROCTER+GAMBLE-PH22002968

PATIENT
  Age: 89 Year
  Sex: Male

DRUGS (1)
  1. METAMUCIL THERAPY FOR REGULARITY [Suspect]
     Active Substance: PSYLLIUM HUSK
     Indication: Bowel movement irregularity
     Dosage: 1 TBSP, 1 /DAY (1 CAP FULL PER DAY)
     Route: 048
     Dates: start: 2019, end: 202203

REACTIONS (3)
  - Intestinal obstruction [Recovered/Resolved]
  - Constipation [Unknown]
  - Drug ineffective [Unknown]
